FAERS Safety Report 7389010-2 (Version None)
Quarter: 2011Q2

REPORT INFORMATION
  Report Type: 
  Country: None (occurrence: None)
  Receive Date: 20110401
  Receipt Date: 20110329
  Transmission Date: 20111010
  Serious: Yes (Other)
  Sender: FDA-Public Use
  Company Number: BR-PFIZER INC-2009256985

PATIENT
  Age: 55 Year
  Sex: Female
  Weight: 62 kg

DRUGS (14)
  1. CALTRATE [Concomitant]
     Dosage: UNK
     Dates: start: 20050101
  2. ZETSIM [Concomitant]
     Indication: BLOOD CHOLESTEROL INCREASED
     Dosage: 20 MG, UNK
  3. EZETIMIBE [Concomitant]
     Dosage: 10 MG, UNK
  4. CHAMPIX [Suspect]
     Dosage: UNK
     Dates: start: 20110305
  5. PROTUSS [Concomitant]
     Indication: OSTEOPENIA
     Dosage: UNK
     Dates: start: 20090401
  6. OSCAL [Concomitant]
     Indication: OSTEOPENIA
     Dosage: UNK
  7. SLENFIG [Concomitant]
     Dosage: UNK
  8. LIPBLOCK [Concomitant]
     Dosage: UNK
  9. OLCADIL [Concomitant]
     Indication: INSOMNIA
     Dosage: UNK
     Dates: start: 20020101
  10. CEWIN [Concomitant]
     Indication: OSTEOPENIA
     Dosage: UNK
     Dates: start: 20050101
  11. LIPANON [Concomitant]
     Indication: PROPHYLAXIS
     Dosage: UNK
  12. SYNTHROID [Concomitant]
     Indication: AUTOIMMUNE THYROIDITIS
     Dosage: UNK
     Dates: start: 20050101
  13. TAMOXIFEN [Concomitant]
     Dosage: UNK
     Dates: start: 20060101
  14. CHAMPIX [Suspect]
     Indication: TOBACCO USER
     Dosage: UNK
     Route: 048
     Dates: start: 20090101

REACTIONS (6)
  - INSOMNIA [None]
  - BREAST CANCER [None]
  - MALAISE [None]
  - FLATULENCE [None]
  - NAUSEA [None]
  - HEADACHE [None]
